FAERS Safety Report 5663665-2 (Version None)
Quarter: 2008Q1

REPORT INFORMATION
  Report Type: 
  Country: None (occurrence: None)
  Receive Date: 20080307
  Receipt Date: 20080225
  Transmission Date: 20080703
  Serious: Yes (Life-Threatening, Hospitalization)
  Sender: FDA-Public Use
  Company Number: DSA_31505_2008

PATIENT
  Sex: Female

DRUGS (18)
  1. LORAZEPAM [Suspect]
     Indication: RESTLESSNESS
     Dosage: 1 MG, QD; ORAL
     Route: 048
     Dates: start: 20041011
  2. LORAZEPAM [Suspect]
     Indication: RESTLESSNESS
     Dosage: 1 MG,QD, INTRAVENOUS (NOT OTHERWISE SPECIFIED))
     Route: 042
     Dates: start: 20041010, end: 20041010
  3. ACETYLCYSTEINE [Suspect]
     Indication: PRODUCTIVE COUGH
     Dosage: 200 MG TID, ORAL
     Route: 048
     Dates: start: 20041005, end: 20041013
  4. ACETYLSALICYLIC ACID SRT [Suspect]
     Indication: THROMBOSIS PROPHYLAXIS
     Dosage: 100 MG QD, ORAL
     Route: 048
     Dates: start: 20041005, end: 20041026
  5. BELOC-ZOC COMP (METOPROLOL SUCCINATE) [Suspect]
     Indication: HYPERTENSION
     Dosage: 1.5 TABLETS PER DAY, ORAL
     Route: 048
     Dates: start: 20041005, end: 20041026
  6. ENOXAPARIN SODIUM [Suspect]
     Indication: THROMBOSIS PROPHYLAXIS
     Dosage: 0.4 MG QD; SUBCUTANEOUS
     Route: 058
     Dates: start: 20041007, end: 20041026
  7. ENALAPRIL MALEATE [Suspect]
     Indication: HYPERTENSION
     Dosage: 5 MG, BID; ORAL
     Route: 048
     Dates: start: 20041005, end: 20041026
  8. HALDOL [Suspect]
     Indication: RESTLESSNESS
     Dosage: 1 VIAL; INTRAVENOUS
     Route: 042
     Dates: start: 20041010, end: 20041010
  9. HALDOL [Suspect]
     Indication: RESTLESSNESS
     Dosage: 5 DROPS 1 X PER 1 DAY; ORAL
     Route: 048
     Dates: start: 20041010, end: 20041025
  10. POTASSIUM CARBONATE / POTASSIUM CITRATE [Suspect]
     Indication: RESTLESSNESS
     Dosage: 1 X PER 1 DAY, ORAL
     Route: 048
     Dates: start: 20041005, end: 20041026
  11. NORVASC [Suspect]
     Indication: HYPERTENSION
     Dosage: 5 MG, QD. ORAL
     Route: 048
     Dates: start: 20041006, end: 20041026
  12. PHENYTOIN [Suspect]
     Indication: CONVULSION PROPHYLAXIS
     Dosage: 100 MG 5X/DAY; ORAL
     Route: 048
     Dates: start: 20040930, end: 20041025
  13. RANITIDINE HCL [Suspect]
     Indication: PROPHYLAXIS AGAINST GASTROINTESTINAL ULCER
     Dosage: 150 MG QD; ORAL
     Route: 048
     Dates: start: 20040928
  14. SODIUM CHLORIDE [Suspect]
     Indication: ELECTROLYTE SUBSTITUTION THERAPY
     Dosage: 2 CAPSULES 3 X PER 1 DAY; ORAL
     Route: 048
     Dates: start: 20041021, end: 20041026
  15. VALPROATE SODIUM [Concomitant]
  16. GASTROSIL [Concomitant]
  17. REMERGIL [Concomitant]
  18. FENISTIL [Concomitant]

REACTIONS (1)
  - TOXIC EPIDERMAL NECROLYSIS [None]
